FAERS Safety Report 9152770 (Version 1)
Quarter: 2013Q1

REPORT INFORMATION
  Report Type: Spontaneous
  Country: US (occurrence: US)
  Receive Date: 20130308
  Receipt Date: 20130308
  Transmission Date: 20140127
  Serious: Yes (Other)
  Sender: FDA-Public Use
  Company Number: US-009507513-1303USA001869

PATIENT
  Sex: Female

DRUGS (9)
  1. MONTELUKAST SODIUM [Suspect]
     Indication: ASTHMA
  2. HYDROCORTISONE [Concomitant]
     Dosage: 7.5 MG, UNK
  3. FLUTICASONE PROPIONATE (+) SALMETEROL XINAFOATE [Concomitant]
     Dosage: 500 MICROGRAM, INHALATION
     Route: 055
  4. FLUTICASONE PROPIONATE (+) SALMETEROL XINAFOATE [Concomitant]
  5. MOMETASONE FUROATE [Concomitant]
  6. PREDNISOLONE [Concomitant]
  7. DEXAMETHASONE ACETATE [Concomitant]
  8. FLUTICASONE PROPIONATE [Concomitant]
     Dosage: 500 MICROGRAM, INHALATION
     Route: 055
  9. FLUTICASONE PROPIONATE [Concomitant]
     Dosage: 300 MICROGRAM, INHALATION

REACTIONS (4)
  - Upper respiratory tract infection [Unknown]
  - Drug ineffective [Unknown]
  - Asthma [Unknown]
  - Adrenal suppression [Unknown]
